FAERS Safety Report 19855816 (Version 2)
Quarter: 2021Q3

REPORT INFORMATION
  Report Type: Spontaneous
  Country: US (occurrence: US)
  Receive Date: 20210920
  Receipt Date: 20210925
  Transmission Date: 20211014
  Serious: Yes (Death, Hospitalization)
  Sender: FDA-Public Use
  Company Number: US-ROCHE-2915969

PATIENT
  Age: 48 Year
  Sex: Male
  Weight: 86.5 kg

DRUGS (1)
  1. ACTEMRA [Suspect]
     Active Substance: TOCILIZUMAB
     Indication: COVID-19
     Dosage: 400 MG/ML DOSE:400 MG/ML TOTAL DOSE 692 MG
     Route: 042
     Dates: start: 20210825, end: 20210825

REACTIONS (5)
  - Off label use [Unknown]
  - Pulmonary embolism [Unknown]
  - Pulseless electrical activity [Unknown]
  - Death [Fatal]
  - Bradycardia [Unknown]

NARRATIVE: CASE EVENT DATE: 20210829
